FAERS Safety Report 25282041 (Version 1)
Quarter: 2025Q2

REPORT INFORMATION
  Report Type: Other
  Country: GB (occurrence: GB)
  Receive Date: 20250508
  Receipt Date: 20250508
  Transmission Date: 20250717
  Serious: Yes (Other)
  Sender: MACLEODS
  Company Number: GB-MHRA-TPP49187979C9708628YC1745588388869

PATIENT

DRUGS (12)
  1. DONEPEZIL [Suspect]
     Active Substance: DONEPEZIL
     Indication: Product used for unknown indication
     Route: 065
  2. METOCLOPRAMIDE [Concomitant]
     Active Substance: METOCLOPRAMIDE
     Indication: Product used for unknown indication
     Dosage: 10ML UPTO THREE TIMES PER DAY AS PER PALLIATIVE...
     Route: 065
     Dates: start: 20250212, end: 20250422
  3. MORPHINE SULFATE [Concomitant]
     Active Substance: MORPHINE SULFATE
     Indication: Pain
     Route: 065
     Dates: start: 20250212, end: 20250422
  4. ATORVASTATIN [Concomitant]
     Active Substance: ATORVASTATIN
     Indication: Ill-defined disorder
     Dosage: TAKE ONE TABLET AT NIGHT - CAN BE CRUSHED AND M...
     Route: 065
     Dates: start: 20241029, end: 20250417
  5. BENDROFLUMETHIAZIDE [Concomitant]
     Active Substance: BENDROFLUMETHIAZIDE
     Indication: Product used for unknown indication
     Dosage: ONE TO BE TAKEN DAILY - CAN BE DISPERSED IN WAT...
     Route: 065
     Dates: start: 20241029, end: 20250417
  6. HYDROCORTISONE [Concomitant]
     Active Substance: HYDROCORTISONE
     Indication: Product used for unknown indication
     Dosage: APPLY TWICE DAILY
     Route: 065
     Dates: start: 20241029, end: 20250417
  7. LERCANIDIPINE HYDROCHLORIDE [Concomitant]
     Active Substance: LERCANIDIPINE HYDROCHLORIDE
     Indication: Product used for unknown indication
     Dosage: ONE TO BE TAKEN EACH DAY - CAN BE CRUSHED AND M...
     Route: 065
     Dates: start: 20241029
  8. TAMSULOSIN HYDROCHLORIDE [Concomitant]
     Active Substance: TAMSULOSIN HYDROCHLORIDE
     Indication: Product used for unknown indication
     Dosage: TAKE ONE DAILY - CAPSULE CAN BE OPENED AND CONT...
     Route: 065
     Dates: start: 20241029, end: 20250422
  9. OMEPRAZOLE [Concomitant]
     Active Substance: OMEPRAZOLE
     Indication: Product used for unknown indication
     Dosage: TAKE TWO CAPSULES TWICE DAILY
     Route: 065
     Dates: start: 20241120, end: 20250422
  10. PREGABALIN [Concomitant]
     Active Substance: PREGABALIN
     Indication: Product used for unknown indication
     Dosage: TAKE ONE CAPSULE TWICE A DAY AS PER PALLIATIVE ...
     Route: 065
     Dates: start: 20250212, end: 20250422
  11. Aymes Shake [Concomitant]
     Indication: Product used for unknown indication
     Dosage: SACHETS. TAKE TWICE A DAY BETWEEN MEALS (MADE U...
     Route: 065
     Dates: start: 20250214
  12. POLYETHYLENE GLYCOL 3350\POTASSIUM CHLORIDE\SODIUM BICARBONATE\SODIUM [Concomitant]
     Active Substance: POLYETHYLENE GLYCOL 3350\POTASSIUM CHLORIDE\SODIUM BICARBONATE\SODIUM CHLORIDE
     Indication: Product used for unknown indication
     Dosage: TAKE ONE SACHET TWICE DAILY
     Route: 065
     Dates: start: 20250417, end: 20250422

REACTIONS (2)
  - Bradycardia [Recovered/Resolved]
  - Electrocardiogram QT prolonged [Unknown]
